FAERS Safety Report 4958811-X (Version None)
Quarter: 2006Q1

REPORT INFORMATION
  Report Type: 
  Country: None (occurrence: None)
  Receive Date: 20060324
  Receipt Date: 20060315
  Transmission Date: 20060701
  Serious: Yes (Other)
  Sender: FDA-Public Use
  Company Number: 2006036393

PATIENT
  Age: 14 Year
  Sex: Female
  Weight: 61.2356 kg

DRUGS (4)
  1. BENYLIN 1 ALL-IN-ONE COLD AND FLU DAY (PARACETAMOL, PSEUDOEPHEDRINE, D [Suspect]
     Indication: NASOPHARYNGITIS
     Dosage: 2 CAPLETS ONCE, ORAL
     Route: 048
     Dates: start: 20060314, end: 20060314
  2. SALBUTAMOL (SALBUTAMOL) [Suspect]
     Indication: ASTHMA
     Dosage: 1 ML ONCE, INHALATION
     Route: 055
     Dates: start: 20060314, end: 20060314
  3. METHYLPHENIDATE HCL [Concomitant]
  4. BUDENOSIDE (BUDESONIDE) [Suspect]
     Indication: ASTHMA
     Dosage: INHALATION
     Route: 055
     Dates: start: 20060314

REACTIONS (5)
  - COUGH [None]
  - CYANOSIS [None]
  - DRUG INEFFECTIVE [None]
  - MUSCLE CONTRACTIONS INVOLUNTARY [None]
  - SCIATICA [None]
